FAERS Safety Report 14259253 (Version 2)
Quarter: 2018Q1

REPORT INFORMATION
  Report Type: Other
  Country: CA (occurrence: CA)
  Receive Date: 20171207
  Receipt Date: 20180316
  Transmission Date: 20180508
  Serious: Yes (Hospitalization)
  Sender: FDA-Public Use
  Company Number: CA-DUCHESNAY INC.-2036894

PATIENT
  Sex: Male
  Weight: 3.51 kg

DRUGS (10)
  1. MATERNA [Suspect]
     Active Substance: MINERALS\VITAMINS
     Dates: start: 2015
  2. OPIOD (S) [Suspect]
     Active Substance: UNSPECIFIED INGREDIENT
  3. SUBUTEX [Suspect]
     Active Substance: BUPRENORPHINE HYDROCHLORIDE
  4. DICLEGIS [Suspect]
     Active Substance: DOXYLAMINE SUCCINATE\PYRIDOXINE HYDROCHLORIDE
     Indication: NAUSEA
     Dates: start: 2015
  5. WINRHO [Suspect]
     Active Substance: HUMAN RHO(D) IMMUNE GLOBULIN
  6. SUBOXONE [Suspect]
     Active Substance: BUPRENORPHINE HYDROCHLORIDE\NALOXONE HYDROCHLORIDE
     Dates: start: 2016
  7. SUBUTEX [Suspect]
     Active Substance: BUPRENORPHINE HYDROCHLORIDE
     Dates: start: 2016, end: 2017
  8. COCAINE [Suspect]
     Active Substance: COCAINE
  9. NICOTINE. [Suspect]
     Active Substance: NICOTINE
     Dates: start: 2016
  10. SUBOXONE [Suspect]
     Active Substance: BUPRENORPHINE HYDROCHLORIDE\NALOXONE HYDROCHLORIDE

REACTIONS (3)
  - Maternal exposure during breast feeding [Recovered/Resolved]
  - Foetal exposure during pregnancy [None]
  - Drug withdrawal syndrome neonatal [Recovered/Resolved]
